FAERS Safety Report 9851299 (Version 1)
Quarter: 2014Q1

REPORT INFORMATION
  Report Type: Report from Study
  Country: DE (occurrence: DE)
  Receive Date: 20140129
  Receipt Date: 20140129
  Transmission Date: 20141002
  Serious: Yes (Other)
  Sender: FDA-Public Use
  Company Number: DE-ROCHE-1143008

PATIENT
  Age: 51 Year
  Sex: Male
  Weight: 96 kg

DRUGS (2)
  1. PEG-INTERFERON ALFA 2A [Suspect]
     Indication: CHRONIC HEPATITIS C
     Route: 058
     Dates: start: 20120510, end: 20120927
  2. RIBAVIRIN [Suspect]
     Indication: CHRONIC HEPATITIS C
     Route: 048
     Dates: start: 20120510, end: 20121002

REACTIONS (2)
  - Respiratory distress [Not Recovered/Not Resolved]
  - Cough [Not Recovered/Not Resolved]
